FAERS Safety Report 6788848-X (Version None)
Quarter: 2010Q2

REPORT INFORMATION
  Report Type: 
  Country: None (occurrence: None)
  Receive Date: 20100623
  Receipt Date: 20080602
  Transmission Date: 20101027
  Serious: No
  Sender: FDA-Public Use
  Company Number: US-PFIZER INC-2008031077

PATIENT
  Sex: Female
  Weight: 49.9 kg

DRUGS (5)
  1. GEODON [Suspect]
     Indication: MENTAL DISORDER
     Route: 048
     Dates: start: 20080301, end: 20080428
  2. KLONOPIN [Concomitant]
  3. PROVIGIL [Concomitant]
  4. AMPHETAMINE SULFATE [Concomitant]
  5. DEXTROAMPHETAMINE SULFATE [Concomitant]

REACTIONS (7)
  - CHEST PAIN [None]
  - DYSPNOEA [None]
  - HYPERVENTILATION [None]
  - NAUSEA [None]
  - PYREXIA [None]
  - WEIGHT INCREASED [None]
  - WITHDRAWAL SYNDROME [None]
